FAERS Safety Report 7413622-0 (Version None)
Quarter: 2011Q2

REPORT INFORMATION
  Report Type: 
  Country: None (occurrence: None)
  Receive Date: 20110413
  Receipt Date: 20110330
  Transmission Date: 20111010
  Serious: Yes (Hospitalization)
  Sender: FDA-Public Use
  Company Number: US-CELGENEUS-163-20785-11040066

PATIENT
  Sex: Female

DRUGS (2)
  1. THALOMID [Suspect]
     Dosage: 50 MILLIGRAM
     Route: 048
     Dates: start: 20110128
  2. THALOMID [Suspect]
     Indication: BEHCET'S SYNDROME
     Dosage: 50 MILLIGRAM
     Route: 048
     Dates: start: 20080404, end: 20091224

REACTIONS (1)
  - GALLBLADDER DISORDER [None]
